FAERS Safety Report 14689291 (Version 1)
Quarter: 2018Q1

REPORT INFORMATION
  Report Type: Spontaneous
  Country: DE (occurrence: DE)
  Receive Date: 20180328
  Receipt Date: 20180328
  Transmission Date: 20180509
  Serious: Yes (Other)
  Sender: FDA-Public Use
  Company Number: PHHY2018DE052322

PATIENT
  Sex: Male

DRUGS (1)
  1. ILARIS [Suspect]
     Active Substance: CANAKINUMAB
     Indication: GOUTY ARTHRITIS
     Dosage: 150 MG, UNK
     Route: 065
     Dates: start: 201712

REACTIONS (5)
  - Gamma-glutamyltransferase increased [Unknown]
  - Infection [Unknown]
  - Pancytopenia [Unknown]
  - Transaminases increased [Unknown]
  - Pneumonia [Unknown]

NARRATIVE: CASE EVENT DATE: 20180309
